FAERS Safety Report 8428117 (Version 7)
Quarter: 2013Q2

REPORT INFORMATION
  Report Type: Report from Study
  Country: US (occurrence: US)
  Receive Date: 20120227
  Receipt Date: 20130530
  Transmission Date: 20140414
  Serious: Yes (Hospitalization)
  Sender: FDA-Public Use
  Company Number: US-ROCHE-1040361

PATIENT
  Age: 54 Year
  Sex: Male
  Weight: 102 kg

DRUGS (21)
  1. BLINDED TOCILIZUMAB [Suspect]
     Indication: RHEUMATOID ARTHRITIS
     Dosage: DATE OF LAST DOSE PRIOR TO SAE: 05/SEP/2011
     Route: 058
     Dates: start: 20110325
  2. BLINDED TOCILIZUMAB [Suspect]
     Indication: RHEUMATOID ARTHRITIS
     Dosage: LAST DOSE PRIOR TO SAE ON 16 AUGUST 2011.
     Route: 042
     Dates: start: 20110325
  3. TOCILIZUMAB [Suspect]
     Indication: RHEUMATOID ARTHRITIS
     Dosage: DATE OF LAST DOSE PRIOR TO SAE: 24 JAN 2012
     Route: 058
     Dates: start: 20110916
  4. METFORMIN [Concomitant]
     Route: 048
     Dates: start: 2010
  5. THYROXINE [Concomitant]
     Route: 048
     Dates: start: 2007
  6. LUMIGAN [Concomitant]
     Route: 047
     Dates: start: 2005
  7. ARAVA [Concomitant]
     Indication: RHEUMATOID ARTHRITIS
     Route: 048
     Dates: start: 200607
  8. PREDNISONE [Concomitant]
     Indication: RHEUMATOID ARTHRITIS
     Route: 048
     Dates: start: 20110121, end: 20120209
  9. PREDNISONE [Concomitant]
     Route: 048
     Dates: start: 20120210, end: 20120212
  10. PREDNISONE [Concomitant]
     Route: 065
     Dates: start: 20120213
  11. VICODIN [Concomitant]
     Indication: RHEUMATOID ARTHRITIS
     Route: 048
     Dates: start: 200510, end: 20120209
  12. VICODIN [Concomitant]
     Route: 048
     Dates: start: 20120210, end: 20120216
  13. VICODIN [Concomitant]
     Route: 048
     Dates: start: 20120217
  14. AUGMENTIN [Concomitant]
     Route: 048
     Dates: start: 20110401, end: 20110410
  15. ENBREL [Concomitant]
     Indication: RHEUMATOID ARTHRITIS
     Route: 058
     Dates: start: 2004
  16. HUMIRA [Concomitant]
     Indication: RHEUMATOID ARTHRITIS
     Route: 058
     Dates: start: 2005
  17. OXYCODONE [Concomitant]
     Route: 048
     Dates: start: 20120210, end: 20120214
  18. PRILOSEC [Concomitant]
     Route: 048
     Dates: start: 20120210, end: 20120215
  19. ROCEPHIN [Concomitant]
     Route: 042
     Dates: start: 20121006, end: 20121006
  20. SOLU-MEDROL [Concomitant]
     Route: 042
     Dates: start: 20121006, end: 20121006
  21. TESTOSTERONE [Concomitant]
     Route: 030
     Dates: start: 20121007, end: 20121007

REACTIONS (2)
  - Cholelithiasis [Recovered/Resolved]
  - Hyperlipidaemia [Not Recovered/Not Resolved]
